FAERS Safety Report 18430492 (Version 1)
Quarter: 2020Q4

REPORT INFORMATION
  Report Type: Spontaneous
  Country: US (occurrence: US)
  Receive Date: 20201027
  Receipt Date: 20201027
  Transmission Date: 20210114
  Serious: No
  Sender: FDA-Public Use
  Company Number: US-ELI_LILLY_AND_COMPANY-US202010009729

PATIENT
  Sex: Female

DRUGS (1)
  1. TRULICITY [Suspect]
     Active Substance: DULAGLUTIDE
     Indication: DIABETES MELLITUS
     Dosage: 1.5 MG, UNKNOWN
     Route: 065

REACTIONS (7)
  - Food craving [Unknown]
  - Blood glucose increased [Unknown]
  - Nausea [Unknown]
  - Hernia [Unknown]
  - Hyperphagia [Unknown]
  - Weight increased [Unknown]
  - Malaise [Unknown]
